FAERS Safety Report 22159676 (Version 1)
Quarter: 2023Q1

REPORT INFORMATION
  Report Type: Report from Study
  Country: CA (occurrence: CA)
  Receive Date: 20230331
  Receipt Date: 20230331
  Transmission Date: 20230417
  Serious: Yes (Other)
  Sender: FDA-Public Use
  Company Number: CA-002147023-NVSC2020CA227996

PATIENT
  Age: 46 Year
  Sex: Female

DRUGS (3)
  1. COSENTYX [Suspect]
     Active Substance: SECUKINUMAB
     Indication: Psoriasis
     Dosage: 450 OT (UNIT UNSPECIFIED), QMO
     Route: 058
     Dates: start: 20191115
  2. COSENTYX [Suspect]
     Active Substance: SECUKINUMAB
     Dosage: 450 OT (UNIT UNSPECIFIED), QMO
     Route: 058
     Dates: start: 20230308
  3. FUROSEMIDE [Concomitant]
     Active Substance: FUROSEMIDE
     Indication: Fluid retention
     Dosage: UNK
     Route: 048

REACTIONS (6)
  - Pneumonia [Unknown]
  - Dyspnoea [Unknown]
  - Swelling face [Unknown]
  - Lip swelling [Unknown]
  - Chapped lips [Unknown]
  - Inappropriate schedule of product administration [Unknown]

NARRATIVE: CASE EVENT DATE: 20221225
